FAERS Safety Report 4283249-0 (Version None)
Quarter: 2004Q1

REPORT INFORMATION
  Report Type: 
  Country: None (occurrence: None)
  Receive Date: 20040129
  Receipt Date: 20040114
  Transmission Date: 20041129
  Serious: Yes (Death)
  Sender: FDA-Public Use
  Company Number: 2004-DE-00254GD

PATIENT
  Age: 80 Year

DRUGS (2)
  1. THEOPHYLLINE [Suspect]
     Dosage: IV
     Route: 042
  2. ANTIBIOTICS (ANTIBIOTICS) [Suspect]

REACTIONS (6)
  - ASTHMA [None]
  - BRONCHITIS [None]
  - MULTI-ORGAN FAILURE [None]
  - PNEUMONIA [None]
  - RESPIRATORY FAILURE [None]
  - SEPSIS [None]
